FAERS Safety Report 21390381 (Version 3)
Quarter: 2023Q1

REPORT INFORMATION
  Report Type: Spontaneous
  Country: US (occurrence: US)
  Receive Date: 20220929
  Receipt Date: 20230227
  Transmission Date: 20230417
  Serious: No
  Sender: FDA-Public Use
  Company Number: US-BRISTOL-MYERS SQUIBB COMPANY-2022-113363

PATIENT
  Age: 71 Year
  Sex: Female

DRUGS (1)
  1. REVLIMID [Suspect]
     Active Substance: LENALIDOMIDE
     Indication: Plasma cell myeloma
     Route: 048
     Dates: start: 202209

REACTIONS (8)
  - Headache [Unknown]
  - Rash vesicular [Recovered/Resolved]
  - Joint swelling [Unknown]
  - Hypotension [Unknown]
  - Rash erythematous [Recovering/Resolving]
  - Dizziness [Unknown]
  - Muscular weakness [Unknown]
  - Blood pressure systolic [Unknown]

NARRATIVE: CASE EVENT DATE: 20220928
